FAERS Safety Report 21773423 (Version 4)
Quarter: 2023Q1

REPORT INFORMATION
  Report Type: Spontaneous
  Country: DE (occurrence: DE)
  Receive Date: 20221223
  Receipt Date: 20230321
  Transmission Date: 20230418
  Serious: Yes (Hospitalization, Other)
  Sender: FDA-Public Use
  Company Number: DE-ABBVIE-4228004

PATIENT
  Age: 44 Year
  Sex: Female

DRUGS (11)
  1. INFLIXIMAB [Suspect]
     Active Substance: INFLIXIMAB
     Dosage: 800 MG, BIW
     Route: 065
     Dates: start: 20220106, end: 20220120
  2. SIMPONI [Suspect]
     Active Substance: GOLIMUMAB
     Dosage: 50 MG, Q4W
     Route: 065
     Dates: start: 20220209, end: 20220309
  3. BUPIVACAINE HYDROCHLORIDE [Suspect]
     Active Substance: BUPIVACAINE HYDROCHLORIDE
     Dosage: UNK
     Route: 014
  4. RINVOQ [Suspect]
     Active Substance: UPADACITINIB
     Indication: Psoriatic arthropathy
     Dosage: 15 MG, DAILY (15 MG, QD)
     Route: 048
     Dates: start: 20211029, end: 20220105
  5. RINVOQ [Suspect]
     Active Substance: UPADACITINIB
     Dosage: 15 MG, DAILY (15 MG, QD)
     Route: 048
     Dates: start: 20220209, end: 20220421
  6. TREMFYA [Suspect]
     Active Substance: GUSELKUMAB
     Dosage: 100 MG, 8 WEEKS
     Route: 065
     Dates: start: 20220309
  7. BISOPROLOL FUMARATE [Concomitant]
     Active Substance: BISOPROLOL FUMARATE
     Dosage: UNK
  8. PANTOPRAZOLE SODIUM [Concomitant]
     Active Substance: PANTOPRAZOLE SODIUM
     Dosage: UNK
  9. ETORICOXIB [Concomitant]
     Active Substance: ETORICOXIB
     Dosage: UNK
     Dates: start: 20211214, end: 20220218
  10. STELARA [Concomitant]
     Active Substance: USTEKINUMAB
     Dosage: UNK
     Dates: start: 20211223, end: 20211223
  11. VITAMIN D/ CALCIUM [Concomitant]
     Dosage: UNK

REACTIONS (7)
  - Drug hypersensitivity [Recovered/Resolved]
  - Psoriatic arthropathy [Recovered/Resolved]
  - Staphylococcal infection [Unknown]
  - Drug eruption [Recovered/Resolved]
  - Arthralgia [Recovered/Resolved]
  - Dyspnoea [Unknown]
  - Pruritus [Unknown]

NARRATIVE: CASE EVENT DATE: 20220101
